FAERS Safety Report 14530581 (Version 1)
Quarter: 2018Q1

REPORT INFORMATION
  Report Type: Spontaneous
  Country: US (occurrence: US)
  Receive Date: 20180213
  Receipt Date: 20180213
  Transmission Date: 20180509
  Serious: Yes (Other)
  Sender: FDA-Public Use
  Company Number: None

PATIENT
  Age: 64 Year
  Sex: Male
  Weight: 79.83 kg

DRUGS (11)
  1. TNG PATCH [Concomitant]
  2. ASA [Concomitant]
     Active Substance: ASPIRIN
  3. KCL [Concomitant]
     Active Substance: POTASSIUM CHLORIDE
  4. LOVENOX [Suspect]
     Active Substance: ENOXAPARIN SODIUM
     Dates: end: 20171114
  5. METOPROLOL XL [Concomitant]
     Active Substance: METOPROLOL SUCCINATE
  6. IMDUR [Concomitant]
     Active Substance: ISOSORBIDE MONONITRATE
  7. EFFIENT [Concomitant]
     Active Substance: PRASUGREL HYDROCHLORIDE
  8. SONATA [Concomitant]
     Active Substance: ZALEPLON
  9. EFFIENT [Suspect]
     Active Substance: PRASUGREL HYDROCHLORIDE
  10. DOCUSATE [Concomitant]
     Active Substance: DOCUSATE
  11. LASIX [Concomitant]
     Active Substance: FUROSEMIDE

REACTIONS (1)
  - Injection site haematoma [None]

NARRATIVE: CASE EVENT DATE: 20171114
